FAERS Safety Report 16052818 (Version 1)
Quarter: 2019Q1

REPORT INFORMATION
  Report Type: Spontaneous
  Country: GR (occurrence: GR)
  Receive Date: 20190308
  Receipt Date: 20190308
  Transmission Date: 20190418
  Serious: Yes (Hospitalization, Congenital Anomaly, Other)
  Sender: FDA-Public Use
  Company Number: GR-MYLANLABS-2019M1020922

PATIENT

DRUGS (1)
  1. OLMESARTAN MEDOXOMIL. [Suspect]
     Active Substance: OLMESARTAN MEDOXOMIL
     Indication: ESSENTIAL HYPERTENSION
     Dosage: 20 MG, QD
     Route: 064

REACTIONS (13)
  - Dyspnoea [Recovered/Resolved]
  - Anuria [Recovered/Resolved]
  - Acute kidney injury [Recovering/Resolving]
  - Cerebral ventricle dilatation [Unknown]
  - Anomaly of external ear congenital [Unknown]
  - Premature baby [Recovered/Resolved]
  - Scaphocephaly [Unknown]
  - Fontanelle bulging [Unknown]
  - Congenital foot malformation [Unknown]
  - Neonatal respiratory distress syndrome [Recovered/Resolved]
  - Foetal exposure during pregnancy [Recovered/Resolved]
  - Patent ductus arteriosus [Unknown]
  - Oligohydramnios [Unknown]
